APPROVED DRUG PRODUCT: ESOMEPRAZOLE SODIUM
Active Ingredient: ESOMEPRAZOLE SODIUM
Strength: EQ 40MG BASE/VIAL
Dosage Form/Route: INJECTABLE;INTRAVENOUS
Application: A200882 | Product #002
Applicant: SUN PHARMACEUTICAL INDUSTRIES LTD
Approved: Mar 18, 2013 | RLD: No | RS: No | Type: DISCN